FAERS Safety Report 5639145-7 (Version None)
Quarter: 2008Q1

REPORT INFORMATION
  Report Type: 
  Country: None (occurrence: None)
  Receive Date: 20080226
  Receipt Date: 20080214
  Transmission Date: 20080703
  Serious: Yes (Hospitalization)
  Sender: FDA-Public Use
  Company Number: US-ELI_LILLY_AND_COMPANY-US200802003394

PATIENT
  Age: 83 Year
  Sex: Female

DRUGS (4)
  1. FORTEO [Suspect]
     Dosage: UNK, UNK
     Dates: start: 20080101, end: 20080101
  2. FORTEO [Suspect]
  3. COUMADIN [Concomitant]
     Indication: THROMBOSIS
  4. OXYGEN [Concomitant]

REACTIONS (6)
  - FUNGAL INFECTION [None]
  - HOSPITALISATION [None]
  - INTERNATIONAL NORMALISED RATIO INCREASED [None]
  - MITRAL VALVE DISEASE [None]
  - PROTHROMBIN LEVEL INCREASED [None]
  - PROTHROMBIN TIME PROLONGED [None]
